FAERS Safety Report 13076285 (Version 1)
Quarter: 2016Q4

REPORT INFORMATION
  Report Type: Spontaneous
  Country: JP (occurrence: JP)
  Receive Date: 20161230
  Receipt Date: 20161230
  Transmission Date: 20170207
  Serious: Yes (Death, Other)
  Sender: FDA-Public Use
  Company Number: JP-GLAXOSMITHKLINE-JP2016GSK192547

PATIENT
  Age: 69 Year
  Sex: Male

DRUGS (3)
  1. 5-FLUOROURACIL [Suspect]
     Active Substance: FLUOROURACIL
     Indication: HEPATOCELLULAR CARCINOMA
  2. CISPLATIN. [Suspect]
     Active Substance: CISPLATIN
     Indication: HEPATOCELLULAR CARCINOMA
  3. LAMIVUDINE. [Suspect]
     Active Substance: LAMIVUDINE
     Indication: HEPATITIS B
     Dosage: 100 MG, QD
     Dates: start: 200311

REACTIONS (13)
  - Viral mutation identified [Unknown]
  - Child-Pugh-Turcotte score increased [Unknown]
  - Hepatocellular carcinoma [Fatal]
  - Fibrosis [Unknown]
  - Hepatic function abnormal [Fatal]
  - Hepatitis B [Unknown]
  - Viral load increased [Unknown]
  - Neoplasm progression [Fatal]
  - Hepatic cirrhosis [Unknown]
  - Pathogen resistance [Unknown]
  - Vascular pseudoaneurysm [Unknown]
  - Tumour thrombosis [Unknown]
  - Metastasis [Unknown]

NARRATIVE: CASE EVENT DATE: 200509
